FAERS Safety Report 23387968 (Version 1)
Quarter: 2024Q1

REPORT INFORMATION
  Report Type: Spontaneous
  Country: CA (occurrence: CA)
  Receive Date: 20240110
  Receipt Date: 20240110
  Transmission Date: 20240410
  Serious: Yes (Other)
  Sender: FDA-Public Use
  Company Number: CA-GLAXOSMITHKLINE-CA2024AMR003796

PATIENT

DRUGS (5)
  1. ABACAVIR SULFATE\LAMIVUDINE [Suspect]
     Active Substance: ABACAVIR SULFATE\LAMIVUDINE
     Indication: HIV infection
     Dosage: UNK
     Route: 065
  2. LAMIVUDINE AND ZIDOVUDINE [Suspect]
     Active Substance: LAMIVUDINE\ZIDOVUDINE
     Indication: HIV infection
     Dosage: UNK
     Route: 065
  3. NEVIRAPINE [Suspect]
     Active Substance: NEVIRAPINE
     Indication: HIV infection
     Dosage: UNK
  4. TENOFOVIR [Suspect]
     Active Substance: TENOFOVIR
     Indication: HIV infection
     Dosage: UNK
  5. ATAZANAVIR\RITONAVIR [Concomitant]
     Active Substance: ATAZANAVIR\RITONAVIR
     Indication: HIV infection
     Dosage: UNK
     Route: 065

REACTIONS (2)
  - Pathogen resistance [Unknown]
  - Treatment noncompliance [Unknown]
